FAERS Safety Report 8309447-4 (Version None)
Quarter: 2012Q2

REPORT INFORMATION
  Report Type: 
  Country: None (occurrence: None)
  Receive Date: 20120424
  Receipt Date: 20120424
  Transmission Date: 20120825
  Serious: Yes (Hospitalization)
  Sender: FDA-Public Use
  Company Number: None

PATIENT
  Age: 75 Year
  Sex: Female
  Weight: 60.782 kg

DRUGS (1)
  1. BRILINTA [Suspect]
     Indication: CORONARY ARTERIAL STENT INSERTION
     Dosage: 90MG BID PO
     Route: 048
     Dates: start: 20120327, end: 20120402

REACTIONS (3)
  - DYSPNOEA [None]
  - BACK PAIN [None]
  - CHEST PAIN [None]
